FAERS Safety Report 24098082 (Version 2)
Quarter: 2024Q3

REPORT INFORMATION
  Report Type: Spontaneous
  Country: US (occurrence: US)
  Receive Date: 20240716
  Receipt Date: 20240807
  Transmission Date: 20241017
  Serious: Yes (Hospitalization)
  Sender: TEVA
  Company Number: US-TEVA-VS-3219224

PATIENT
  Age: 18 Year
  Sex: Female

DRUGS (7)
  1. ARIPIPRAZOLE [Suspect]
     Active Substance: ARIPIPRAZOLE
     Indication: Seizure
     Route: 065
  2. ESLICARBAZEPINE [Suspect]
     Active Substance: ESLICARBAZEPINE
     Indication: Seizure
     Dosage: IN THE NIGHT
     Route: 065
  3. ESLICARBAZEPINE [Suspect]
     Active Substance: ESLICARBAZEPINE
     Indication: Seizure
     Dosage: IN THE MORNING
     Route: 065
  4. ESLICARBAZEPINE [Suspect]
     Active Substance: ESLICARBAZEPINE
     Indication: Seizure
     Dosage: LATER IT WAS INCREASED
     Route: 065
  5. METHYLPHENIDATE [Concomitant]
     Active Substance: METHYLPHENIDATE
     Indication: Product used for unknown indication
     Dosage: EXTENDED-RELEASE
     Route: 065
  6. ZONISAMIDE [Suspect]
     Active Substance: ZONISAMIDE
     Indication: Seizure
     Route: 065
  7. ZONISAMIDE [Suspect]
     Active Substance: ZONISAMIDE
     Indication: Seizure
     Route: 065

REACTIONS (13)
  - Seizure [Recovered/Resolved]
  - Thrombocytopenia [Recovered/Resolved]
  - Weight decreased [Recovered/Resolved]
  - Somnolence [Recovered/Resolved]
  - Drug interaction [Unknown]
  - Gait disturbance [Recovered/Resolved]
  - Hypothermia [Recovered/Resolved]
  - Decreased appetite [Recovered/Resolved]
  - Sedation [Recovered/Resolved]
  - Drug level decreased [Recovered/Resolved]
  - Haemoglobin decreased [Recovered/Resolved]
  - Ataxia [Recovered/Resolved]
  - Cognitive disorder [Recovered/Resolved]
